FAERS Safety Report 4353350-1 (Version None)
Quarter: 2004Q2

REPORT INFORMATION
  Report Type: 
  Country: None (occurrence: None)
  Receive Date: 20040505
  Receipt Date: 20040426
  Transmission Date: 20050107
  Serious: Yes (Death)
  Sender: FDA-Public Use
  Company Number: FR-BRISTOL-MYERS SQUIBB COMPANY-12569729

PATIENT
  Age: 47 Year
  Sex: Male

DRUGS (3)
  1. STAVUDINE [Suspect]
     Indication: HIV INFECTION
     Dates: start: 20000401
  2. LAMIVUDINE [Suspect]
     Indication: HIV INFECTION
     Dates: start: 20000401
  3. INDINAVIR [Suspect]
     Indication: HIV INFECTION

REACTIONS (1)
  - PROGRESSIVE MULTIFOCAL LEUKOENCEPHALOPATHY [None]
